FAERS Safety Report 20292330 (Version 3)
Quarter: 2022Q1

REPORT INFORMATION
  Report Type: Report from Study
  Country: US (occurrence: US)
  Receive Date: 20220104
  Receipt Date: 20220315
  Transmission Date: 20220424
  Serious: Yes (Other)
  Sender: FDA-Public Use
  Company Number: US-PFIZER INC-202101285213

PATIENT
  Age: 59 Year
  Sex: Female

DRUGS (2)
  1. IBRANCE [Suspect]
     Active Substance: PALBOCICLIB
     Indication: Breast cancer female
     Dosage: 125 MG, CYCLIC (21 DAYS ON AND 7 DAYS OFF)
     Route: 048
     Dates: start: 20210807
  2. FASLODEX [Concomitant]
     Active Substance: FULVESTRANT
     Dosage: UNK

REACTIONS (10)
  - Hypokalaemia [Unknown]
  - Neoplasm progression [Recovering/Resolving]
  - White blood cell count decreased [Recovering/Resolving]
  - Discomfort [Unknown]
  - Back pain [Recovering/Resolving]
  - Nausea [Unknown]
  - Blood phosphorus increased [Unknown]
  - Arthralgia [Recovered/Resolved]
  - Feeling hot [Recovered/Resolved]
  - Pallor [Unknown]

NARRATIVE: CASE EVENT DATE: 20210101
